FAERS Safety Report 5898039-2 (Version None)
Quarter: 2008Q3

REPORT INFORMATION
  Report Type: 
  Country: None (occurrence: None)
  Receive Date: 20080924
  Receipt Date: 20080924
  Transmission Date: 20090109
  Serious: Yes (Hospitalization)
  Sender: FDA-Public Use
  Company Number: None

PATIENT
  Sex: Female
  Weight: 59.8 kg

DRUGS (2)
  1. FLUOROURACIL [Suspect]
     Dosage: 1967.5 MG
  2. TAXOL [Suspect]
     Dosage: 82 MG

REACTIONS (4)
  - BLOOD PRESSURE ORTHOSTATIC DECREASED [None]
  - DIARRHOEA [None]
  - NAUSEA [None]
  - VOMITING [None]
